FAERS Safety Report 7878647-X (Version None)
Quarter: 2011Q4

REPORT INFORMATION
  Report Type: 
  Country: None (occurrence: None)
  Receive Date: 20111101
  Receipt Date: 20111027
  Transmission Date: 20120403
  Serious: Yes (Life-Threatening)
  Sender: FDA-Public Use
  Company Number: JP-CUBIST-2011S1000715

PATIENT
  Age: 86 Year
  Sex: Male

DRUGS (4)
  1. ZYVOX [Concomitant]
     Indication: PRODUCT USED FOR UNKNOWN INDICATION
     Dosage: DOSE UNIT:U UNKNOWN
     Route: 065
  2. CUBICIN [Suspect]
     Indication: STAPHYLOCOCCAL SEPSIS
     Dosage: DOSE UNIT:U UNKNOWN
     Route: 042
     Dates: start: 20111025, end: 20111025
  3. VANCOMYCIN HCL [Concomitant]
     Indication: PRODUCT USED FOR UNKNOWN INDICATION
     Route: 065
  4. PIPERACILLIN SODIUM [Suspect]
     Indication: PRODUCT USED FOR UNKNOWN INDICATION
     Dosage: DOSE UNIT:U UNKNOWN
     Route: 051

REACTIONS (5)
  - PLATELET COUNT DECREASED [None]
  - PULMONARY FUNCTION TEST DECREASED [None]
  - PLEURAL EFFUSION [None]
  - PULMONARY HAEMORRHAGE [None]
  - STAPHYLOCOCCAL SEPSIS [None]
